FAERS Safety Report 9780993 (Version 1)
Quarter: 2013Q4

REPORT INFORMATION
  Report Type: Spontaneous
  Country: GB (occurrence: GB)
  Receive Date: 20131224
  Receipt Date: 20131224
  Transmission Date: 20140711
  Serious: Yes (Hospitalization)
  Sender: FDA-Public Use
  Company Number: GB-JNJFOC-20131212082

PATIENT
  Age: 67 Year
  Sex: Female
  Weight: 50 kg

DRUGS (9)
  1. RISPERDAL QUICKLETS [Suspect]
     Indication: BIPOLAR I DISORDER
     Route: 048
     Dates: start: 20131016, end: 20131202
  2. HALOPERIDOL [Concomitant]
     Route: 065
  3. ASPIRIN [Concomitant]
     Route: 065
  4. LACTULOSE [Concomitant]
     Route: 065
  5. LANSOPRAZOLE [Concomitant]
     Route: 065
  6. PROCYCLIDINE [Concomitant]
     Route: 065
  7. SENNA [Concomitant]
     Route: 065
  8. SIMVASTATIN [Concomitant]
     Route: 065
  9. VALPROIC ACID [Concomitant]
     Route: 065

REACTIONS (5)
  - Abnormal behaviour [Unknown]
  - Hyponatraemia [Unknown]
  - Mental impairment [Unknown]
  - Paranoia [Unknown]
  - Restlessness [Unknown]
